FAERS Safety Report 20119228 (Version 1)
Quarter: 2021Q4

REPORT INFORMATION
  Report Type: Spontaneous
  Country: PT (occurrence: PT)
  Receive Date: 20211126
  Receipt Date: 20211126
  Transmission Date: 20220303
  Serious: Yes (Hospitalization, Other)
  Sender: FDA-Public Use
  Company Number: PT-009507513-2111PRT008234

PATIENT
  Sex: Male

DRUGS (1)
  1. PEMBROLIZUMAB [Suspect]
     Active Substance: PEMBROLIZUMAB
     Indication: Lung adenocarcinoma stage IV
     Dosage: UNK

REACTIONS (22)
  - Cardiac tamponade [Unknown]
  - Biliary dilatation [Unknown]
  - Biliary obstruction [Unknown]
  - Pericardial effusion [Recovered/Resolved]
  - Malignant neoplasm progression [Unknown]
  - Central nervous system lesion [Unknown]
  - Choluria [Unknown]
  - Gamma-glutamyltransferase increased [Unknown]
  - Tachycardia [Unknown]
  - Disorientation [Unknown]
  - Abnormal behaviour [Unknown]
  - Therapy partial responder [Unknown]
  - Jaundice [Unknown]
  - Memory impairment [Unknown]
  - Vision blurred [Unknown]
  - Aspartate aminotransferase increased [Unknown]
  - Alanine aminotransferase increased [Unknown]
  - Blood alkaline phosphatase increased [Unknown]
  - Blood bilirubin increased [Unknown]
  - Asthenia [Unknown]
  - Fatigue [Unknown]
  - Pruritus [Unknown]

NARRATIVE: CASE EVENT DATE: 20190317
